FAERS Safety Report 9008623 (Version 2)
Quarter: 2013Q1

REPORT INFORMATION
  Report Type: Spontaneous
  Country: US (occurrence: US)
  Receive Date: 20130111
  Receipt Date: 20130225
  Transmission Date: 20140127
  Serious: Yes (Hospitalization)
  Sender: FDA-Public Use
  Company Number: US-ELI_LILLY_AND_COMPANY-US201301001145

PATIENT
  Sex: Female

DRUGS (8)
  1. STRATTERA [Suspect]
     Indication: ATTENTION DEFICIT/HYPERACTIVITY DISORDER
     Dosage: 125 MG, QD
  2. STRATTERA [Suspect]
     Dosage: UNK, UNKNOWN
  3. STRATTERA [Suspect]
     Dosage: UNK, UNKNOWN
  4. STRATTERA [Suspect]
     Dosage: UNK, UNKNOWN
  5. STRATTERA [Suspect]
     Dosage: UNK, UNKNOWN
  6. STRATTERA [Suspect]
     Dosage: UNK, UNKNOWN
  7. STRATTERA [Suspect]
     Dosage: UNK, UNKNOWN
  8. STRATTERA [Suspect]
     Dosage: 100 MG, QD

REACTIONS (4)
  - Haemorrhage [Unknown]
  - Anxiety [Unknown]
  - Prescribed overdose [Unknown]
  - Expired drug administered [Unknown]
